FAERS Safety Report 4973135-2 (Version None)
Quarter: 2006Q2

REPORT INFORMATION
  Report Type: 
  Country: None (occurrence: None)
  Receive Date: 20060414
  Receipt Date: 20050117
  Transmission Date: 20061013
  Serious: Yes (Hospitalization)
  Sender: FDA-Public Use
  Company Number: US-MERCK-0501USA02990

PATIENT
  Sex: Female

DRUGS (2)
  1. VIOXX [Suspect]
     Indication: ARTHRALGIA
     Route: 048
     Dates: start: 20011004
  2. VIOXX [Suspect]
     Route: 048
     Dates: start: 20011004

REACTIONS (17)
  - ACUTE MYOCARDIAL INFARCTION [None]
  - BLOOD PRESSURE INADEQUATELY CONTROLLED [None]
  - CARDIOMYOPATHY [None]
  - CORONARY ARTERY DISEASE [None]
  - CORONARY ARTERY OCCLUSION [None]
  - DIZZINESS [None]
  - DYSLIPIDAEMIA [None]
  - DYSPNOEA [None]
  - FATIGUE [None]
  - IMPLANT SITE PAIN [None]
  - MYOCARDIAL INFARCTION [None]
  - OEDEMA PERIPHERAL [None]
  - PAIN [None]
  - PALPITATIONS [None]
  - PERICARDITIS [None]
  - RADIUS FRACTURE [None]
  - SICK SINUS SYNDROME [None]
